FAERS Safety Report 16184330 (Version 2)
Quarter: 2019Q2

REPORT INFORMATION
  Report Type: Report from Study
  Country: AU (occurrence: AU)
  Receive Date: 20190411
  Receipt Date: 20190516
  Transmission Date: 20190711
  Serious: Yes (Other)
  Sender: FDA-Public Use
  Company Number: AU-EMD SERONO-9047669

PATIENT
  Age: 37 Year
  Sex: Female

DRUGS (2)
  1. MAVENCLAD [Suspect]
     Active Substance: CLADRIBINE
     Indication: MULTIPLE SCLEROSIS
     Dosage: FIRST WEEK THERAPY: TWO DOSAGE FORMS ON DAYS 1 AND 2 AND ONE DOSAGE FORM ON DAYS 3 TO 5 (EACH DOSAGE
     Route: 048
     Dates: start: 20181004, end: 20181008
  2. MAVENCLAD [Suspect]
     Active Substance: CLADRIBINE
     Dosage: SECOND WEEK THERAPY
     Route: 048
     Dates: start: 201811, end: 201811

REACTIONS (5)
  - Anger [Unknown]
  - Pruritus generalised [Recovered/Resolved]
  - Syncope [Unknown]
  - General physical health deterioration [Unknown]
  - Headache [Unknown]

NARRATIVE: CASE EVENT DATE: 201810
